FAERS Safety Report 8983251 (Version 1)
Quarter: 2012Q4

REPORT INFORMATION
  Report Type: 
  Country: CA (occurrence: CA)
  Receive Date: 20121224
  Receipt Date: 20121224
  Transmission Date: 20130627
  Serious: Yes (Other)
  Sender: FDA-Public Use
  Company Number: PHHY2012CA118041

PATIENT
  Sex: Female

DRUGS (1)
  1. AFINITOR [Suspect]
     Indication: PANCREATIC NEUROENDOCRINE TUMOUR
     Dosage: 10 mg, QD
     Dates: start: 20120829

REACTIONS (5)
  - Ascites [Unknown]
  - Hydronephrosis [Unknown]
  - Metastases to lung [Unknown]
  - Metastases to liver [Unknown]
  - Malignant neoplasm progression [Unknown]
